FAERS Safety Report 4486378-1 (Version None)
Quarter: 2004Q4

REPORT INFORMATION
  Report Type: 
  Country: None (occurrence: None)
  Receive Date: 20041026
  Receipt Date: 20041026
  Transmission Date: 20050328
  Serious: No
  Sender: FDA-Public Use
  Company Number: None

PATIENT
  Age: 44 Year
  Sex: Male
  Weight: 130 kg

DRUGS (1)
  1. OXYCODONE SUSTAINED RELEASE  80MG [Suspect]
     Indication: MUSCULOSKELETAL PAIN
     Dosage: 3 TABS  Q8H
     Dates: start: 20041018, end: 20041025

REACTIONS (4)
  - DRUG EFFECT DECREASED [None]
  - NAUSEA [None]
  - PHARMACEUTICAL PRODUCT COMPLAINT [None]
  - VOMITING [None]
